FAERS Safety Report 24618564 (Version 1)
Quarter: 2024Q4

REPORT INFORMATION
  Report Type: Spontaneous
  Country: US (occurrence: None)
  Receive Date: 20241113
  Receipt Date: 20241113
  Transmission Date: 20250114
  Serious: No
  Sender: Public
  Company Number: None

PATIENT
  Age: 30 Year
  Sex: Male
  Weight: 63.05 kg

DRUGS (1)
  1. RINVOQ [Suspect]
     Active Substance: UPADACITINIB
     Indication: Crohn^s disease
     Dosage: TAKE 1 TABLET BY MOUTH DAILY AS DIRECTED.
     Route: 048
     Dates: start: 202407

REACTIONS (1)
  - Abscess [None]
